FAERS Safety Report 20231277 (Version 5)
Quarter: 2022Q2

REPORT INFORMATION
  Report Type: Report from Study
  Country: CN (occurrence: CN)
  Receive Date: 20211227
  Receipt Date: 20220527
  Transmission Date: 20220720
  Serious: Yes (Hospitalization, Other)
  Sender: FDA-Public Use
  Company Number: CN-TAKEDA-2021TUS081686

PATIENT
  Age: 69 Year
  Sex: Female

DRUGS (21)
  1. IXAZOMIB [Suspect]
     Active Substance: IXAZOMIB
     Indication: Plasma cell myeloma
     Dosage: 4 MILLIGRAM, 1/WEEK
     Route: 048
     Dates: start: 20210906
  2. DEXAMETHASONE [Suspect]
     Active Substance: DEXAMETHASONE
     Indication: Plasma cell myeloma
     Dosage: 10 MILLIGRAM, QD
     Route: 042
     Dates: start: 20210906
  3. LENALIDOMIDE [Suspect]
     Active Substance: LENALIDOMIDE
     Indication: Plasma cell myeloma
     Dosage: 25 MILLIGRAM, QD
     Route: 048
     Dates: start: 20210906, end: 20210926
  4. LENALIDOMIDE [Suspect]
     Active Substance: LENALIDOMIDE
     Dosage: 25 MILLIGRAM, QD
     Route: 048
     Dates: start: 20211118, end: 20211209
  5. PANCREATIN [Concomitant]
     Active Substance: PANCRELIPASE
     Indication: Pancreatitis
     Dosage: 300 MILLIGRAM, TID
     Route: 048
     Dates: start: 20210918, end: 20211213
  6. RABEPRAZOLE SODIUM [Concomitant]
     Active Substance: RABEPRAZOLE SODIUM
     Indication: Dyspepsia
     Dosage: 20 MILLIGRAM, QD
     Route: 048
     Dates: start: 20210923, end: 20211117
  7. DEXAMETHASONE [Concomitant]
     Active Substance: DEXAMETHASONE
     Indication: Plasma cell myeloma
     Dosage: 10 MILLIGRAM, 1/WEEK
     Route: 048
     Dates: start: 20210913, end: 20210927
  8. DEXAMETHASONE [Concomitant]
     Active Substance: DEXAMETHASONE
     Dosage: 10 MILLIGRAM, 1/WEEK
     Route: 048
     Dates: start: 20211118, end: 20211209
  9. PANTOPRAZOLE SODIUM [Concomitant]
     Active Substance: PANTOPRAZOLE SODIUM
     Indication: Gastrointestinal disorder prophylaxis
     Dosage: 40 MILLIGRAM, 1/WEEK
     Route: 048
     Dates: start: 20210906, end: 20210927
  10. RIVAROXABAN [Concomitant]
     Active Substance: RIVAROXABAN
     Indication: Thrombosis
     Dosage: 10 MILLIGRAM, QD
     Route: 048
     Dates: start: 20210907, end: 20210913
  11. ENTECAVIR [Concomitant]
     Active Substance: ENTECAVIR
     Indication: Chronic hepatitis B
     Dosage: 0.5 MILLIGRAM, QD
     Route: 048
     Dates: start: 20210907, end: 20210913
  12. TROPISETRON [Concomitant]
     Active Substance: TROPISETRON
     Indication: Gastrointestinal disorder prophylaxis
     Dosage: 5 MILLIGRAM, QD
     Route: 042
     Dates: start: 20210906, end: 20210906
  13. Magnesium glycyrrhizinate [Concomitant]
     Indication: Chronic hepatitis B
     Dosage: 150 MILLIGRAM, QD
     Route: 042
     Dates: start: 20210906, end: 20210907
  14. NIFEDIPINE [Concomitant]
     Active Substance: NIFEDIPINE
     Indication: Hypertension
     Dosage: 30 MILLIGRAM, QD
     Route: 048
     Dates: start: 20210907, end: 20210913
  15. MOSAPRIDE [Concomitant]
     Active Substance: MOSAPRIDE
     Indication: Dyspepsia
     Dosage: 5 MILLIGRAM, TID
     Route: 048
     Dates: start: 20210907, end: 20210913
  16. FUROSEMIDE [Concomitant]
     Active Substance: FUROSEMIDE
     Indication: Polyuria
     Dosage: 20 MILLIGRAM, QD
     Route: 048
     Dates: start: 20210907, end: 20210913
  17. SPIRONOLACTONE [Concomitant]
     Active Substance: SPIRONOLACTONE
     Indication: Polyuria
     Dosage: 20 MILLIGRAM, QD
     Route: 048
     Dates: start: 20210907, end: 20210913
  18. VALACYCLOVIR [Concomitant]
     Active Substance: VALACYCLOVIR HYDROCHLORIDE
     Indication: Prophylaxis
     Dosage: 0.5 GRAM, BID
     Route: 048
     Dates: start: 20210916, end: 20210922
  19. METHYLCOBALAMIN [Concomitant]
     Active Substance: METHYLCOBALAMIN
     Indication: Paralysis
     Dosage: 0.5 MILLIGRAM, TID
     Route: 048
     Dates: start: 20210916, end: 20211001
  20. BIFIDOBACTERIUM BIFIDUM [Concomitant]
     Active Substance: BIFIDOBACTERIUM BIFIDUM
     Indication: Prophylaxis
     Dosage: 2 GRAM, TID
     Route: 048
     Dates: start: 20210918, end: 20211014
  21. LACTULOSE [Concomitant]
     Active Substance: LACTULOSE
     Indication: Constipation
     Dosage: 15 MILLILITER, TID
     Route: 048
     Dates: start: 20210918, end: 20210922

REACTIONS (5)
  - Hypokalaemia [Recovered/Resolved]
  - Diarrhoea [Not Recovered/Not Resolved]
  - Insomnia [Not Recovered/Not Resolved]
  - Dizziness [Not Recovered/Not Resolved]
  - Off label use [Unknown]

NARRATIVE: CASE EVENT DATE: 20210901
